FAERS Safety Report 19237990 (Version 1)
Quarter: 2021Q2

REPORT INFORMATION
  Report Type: Spontaneous
  Country: AT (occurrence: AT)
  Receive Date: 20210510
  Receipt Date: 20210510
  Transmission Date: 20210717
  Serious: Yes (Other)
  Sender: FDA-Public Use
  Company Number: AT-CURIUM-199500159

PATIENT
  Sex: Female

DRUGS (4)
  1. GALLIUM CITRATE GA 67 [Suspect]
     Active Substance: GALLIUM CITRATE GA-67
     Dosage: SINGLE USE
     Route: 042
     Dates: start: 19950410, end: 19950410
  2. VOLTAREN ? SLOW RELE [Concomitant]
     Route: 065
  3. AUGMENTIN [Concomitant]
     Active Substance: AMOXICILLIN\CLAVULANATE POTASSIUM
     Route: 065
  4. VANCOMYCIN [Concomitant]
     Active Substance: VANCOMYCIN
     Route: 065

REACTIONS (4)
  - Nausea [Recovered/Resolved]
  - Pruritus [Recovered/Resolved]
  - Urticaria [Recovered/Resolved]
  - Syncope [Recovered/Resolved]

NARRATIVE: CASE EVENT DATE: 19950410
